FAERS Safety Report 13726714 (Version 1)
Quarter: 2017Q3

REPORT INFORMATION
  Report Type: Spontaneous
  Country: US (occurrence: US)
  Receive Date: 20170706
  Receipt Date: 20170706
  Transmission Date: 20171127
  Serious: Yes (Other)
  Sender: FDA-Public Use
  Company Number: US-IMPAX LABORATORIES, INC-2017-IPXL-01953

PATIENT
  Age: 67 Year
  Sex: Male

DRUGS (6)
  1. METOPROLOL. [Suspect]
     Active Substance: METOPROLOL
     Indication: PRODUCT USED FOR UNKNOWN INDICATION
     Dosage: UNK
     Route: 065
  2. BUPROPION HYDROCHLORIDE EXTENDED-RELEASE [Suspect]
     Active Substance: BUPROPION HYDROCHLORIDE
     Indication: PRODUCT USED FOR UNKNOWN INDICATION
     Dosage: 150 MG, 2 /DAY
     Route: 065
  3. SIMVASTATIN. [Suspect]
     Active Substance: SIMVASTATIN
     Indication: PRODUCT USED FOR UNKNOWN INDICATION
     Dosage: UNK
     Route: 065
  4. MIRTAZAPINE ODT [Suspect]
     Active Substance: MIRTAZAPINE
     Indication: POST-TRAUMATIC STRESS DISORDER
     Dosage: UNK
     Route: 065
  5. PRAZOSIN. [Suspect]
     Active Substance: PRAZOSIN
     Indication: POST-TRAUMATIC STRESS DISORDER
     Dosage: 2 MG NIGHTLY
     Route: 065
  6. CLONAZEPAM. [Suspect]
     Active Substance: CLONAZEPAM
     Indication: PRODUCT USED FOR UNKNOWN INDICATION
     Dosage: 1 MG, 3 /DAY
     Route: 065

REACTIONS (3)
  - Headache [Unknown]
  - Drug intolerance [Unknown]
  - Post-traumatic stress disorder [Recovering/Resolving]
